FAERS Safety Report 21707265 (Version 1)
Quarter: 2022Q4

REPORT INFORMATION
  Report Type: Report from Study
  Country: US (occurrence: US)
  Receive Date: 20221209
  Receipt Date: 20221209
  Transmission Date: 20230112
  Serious: No
  Sender: FDA-Public Use
  Company Number: US-ABBVIE-4193231

PATIENT
  Age: 62 Year
  Sex: Male

DRUGS (1)
  1. HUMIRA [Suspect]
     Active Substance: ADALIMUMAB
     Indication: Rheumatoid arthritis
     Route: 058
     Dates: start: 20220707

REACTIONS (3)
  - Respiratory disorder [Recovering/Resolving]
  - Productive cough [Recovering/Resolving]
  - Lung disorder [Recovering/Resolving]

NARRATIVE: CASE EVENT DATE: 20221001
